FAERS Safety Report 7414145-5 (Version None)
Quarter: 2011Q2

REPORT INFORMATION
  Report Type: 
  Country: None (occurrence: None)
  Receive Date: 20110414
  Receipt Date: 20110408
  Transmission Date: 20111010
  Serious: Yes (Other)
  Sender: FDA-Public Use
  Company Number: DE-PFIZER INC-2011077682

PATIENT
  Age: 56 Year
  Sex: Female

DRUGS (1)
  1. CAMPTOSAR [Suspect]

REACTIONS (1)
  - HEPATITIS C [None]
